FAERS Safety Report 8138287-4 (Version None)
Quarter: 2012Q1

REPORT INFORMATION
  Report Type: 
  Country: None (occurrence: None)
  Receive Date: 20120215
  Receipt Date: 20120209
  Transmission Date: 20120608
  Serious: Yes (Life-Threatening, Hospitalization)
  Sender: FDA-Public Use
  Company Number: CN-JNJFOC-20120206541

PATIENT
  Sex: Male
  Weight: 57 kg

DRUGS (4)
  1. PROPRANOLOL HYDROCHLORIDE [Suspect]
     Indication: TACHYCARDIA
     Route: 048
     Dates: start: 20111017
  2. BENZHEXOL HYDROCHLORIDE [Concomitant]
     Indication: EXTRAPYRAMIDAL DISORDER
     Route: 048
     Dates: start: 20111017
  3. ALPRAZOLAM [Concomitant]
     Indication: AKATHISIA
     Route: 048
     Dates: start: 20111029
  4. INVEGA [Suspect]
     Indication: SCHIZOPHRENIA
     Route: 048

REACTIONS (1)
  - CARDIAC ARREST [None]
